FAERS Safety Report 9176112 (Version 1)
Quarter: 2012Q4

REPORT INFORMATION
  Report Type: 
  Country: US (occurrence: US)
  Receive Date: 20120920
  Receipt Date: 20120920
  Transmission Date: 20130627
  Serious: Yes (Other)
  Sender: FDA-Public Use
  Company Number: US-RB-044502-12

PATIENT
  Age: 36 Year
  Sex: Female

DRUGS (1)
  1. MUCINEX DM [Suspect]
     Indication: PRODUCT USED FOR UNKNOWN INDICATION
     Dosage: Took just two tablets
     Route: 048
     Dates: start: 20120912

REACTIONS (2)
  - Hallucination [Recovered/Resolved]
  - Feeling abnormal [Recovered/Resolved]
